FAERS Safety Report 8352495-9 (Version None)
Quarter: 2012Q2

REPORT INFORMATION
  Report Type: 
  Country: None (occurrence: None)
  Receive Date: 20120511
  Receipt Date: 20120507
  Transmission Date: 20120825
  Serious: Yes (Other)
  Sender: FDA-Public Use
  Company Number: PHHY2012FR004395

PATIENT
  Sex: Female

DRUGS (3)
  1. DOXORUBICIN HCL [Concomitant]
     Indication: BREAST CANCER
     Dosage: 50 MG, UNK
     Dates: start: 20110601, end: 20110801
  2. ZOMETA [Suspect]
     Dosage: 1 DF, QMO
     Dates: start: 20110401
  3. CYCLOPHOSPHAMIDE [Concomitant]
     Route: 042
     Dates: start: 20110601, end: 20110801

REACTIONS (4)
  - OSTEONECROSIS OF JAW [None]
  - PAIN IN JAW [None]
  - IMPAIRED HEALING [None]
  - PRIMARY SEQUESTRUM [None]
